FAERS Safety Report 7450527-3 (Version None)
Quarter: 2011Q2

REPORT INFORMATION
  Report Type: 
  Country: None (occurrence: None)
  Receive Date: 20110502
  Receipt Date: 20110426
  Transmission Date: 20111010
  Serious: Yes (Other)
  Sender: FDA-Public Use
  Company Number: PHHY2011US35543

PATIENT
  Sex: Female

DRUGS (2)
  1. BLOOD PRESSURE MEDICATIONS [Suspect]
  2. DIOVAN [Suspect]

REACTIONS (1)
  - ROAD TRAFFIC ACCIDENT [None]
